FAERS Safety Report 11663004 (Version 2)
Quarter: 2015Q4

REPORT INFORMATION
  Report Type: Spontaneous
  Country: US (occurrence: US)
  Receive Date: 20151027
  Receipt Date: 20151027
  Transmission Date: 20160304
  Serious: No
  Sender: FDA-Public Use
  Company Number: US-MEDA-2010050010

PATIENT
  Age: 55 Year
  Sex: Female
  Weight: 99 kg

DRUGS (8)
  1. EDLUAR [Suspect]
     Active Substance: ZOLPIDEM TARTRATE
     Indication: SLEEP DISORDER
     Route: 060
     Dates: start: 20100318, end: 20100319
  2. EFFEXOR [Concomitant]
     Active Substance: VENLAFAXINE HYDROCHLORIDE
     Route: 048
  3. NEURONTIN [Concomitant]
     Active Substance: GABAPENTIN
     Route: 048
  4. SYNTHROID [Concomitant]
     Active Substance: LEVOTHYROXINE SODIUM
     Route: 048
  5. ABILIFY [Concomitant]
     Active Substance: ARIPIPRAZOLE
     Route: 048
  6. DURAGESIC [Concomitant]
     Active Substance: FENTANYL
     Dosage: 75 MCG/HR
     Route: 062
  7. NAPROXEN. [Concomitant]
     Active Substance: NAPROXEN
     Route: 048
  8. EDLUAR [Suspect]
     Active Substance: ZOLPIDEM TARTRATE
     Indication: NEURITIS
     Route: 060
     Dates: start: 20100318, end: 20100319

REACTIONS (2)
  - Rash pruritic [Recovered/Resolved]
  - Hypersensitivity [Recovered/Resolved]

NARRATIVE: CASE EVENT DATE: 20100318
